FAERS Safety Report 19958482 (Version 2)
Quarter: 2021Q4

REPORT INFORMATION
  Report Type: Spontaneous
  Country: US (occurrence: US)
  Receive Date: 20211015
  Receipt Date: 20211121
  Transmission Date: 20220303
  Serious: No
  Sender: FDA-Public Use
  Company Number: US-009507513-2110USA003630

PATIENT
  Sex: Male

DRUGS (5)
  1. CUBICIN [Suspect]
     Active Substance: DAPTOMYCIN
     Indication: Enterococcal infection
     Dosage: UNK
  2. CUBICIN [Suspect]
     Active Substance: DAPTOMYCIN
     Indication: Febrile neutropenia
  3. CUBICIN [Suspect]
     Active Substance: DAPTOMYCIN
     Indication: Bacteraemia
  4. LINEZOLID [Concomitant]
     Active Substance: LINEZOLID
     Indication: Enterococcal infection
     Dosage: UNK
  5. LINEZOLID [Concomitant]
     Active Substance: LINEZOLID
     Indication: Febrile neutropenia

REACTIONS (1)
  - Product use in unapproved indication [Unknown]
